FAERS Safety Report 25763025 (Version 1)
Quarter: 2025Q3

REPORT INFORMATION
  Report Type: Report from Study
  Country: EU (occurrence: EU)
  Receive Date: 20250904
  Receipt Date: 20250904
  Transmission Date: 20251021
  Serious: Yes (Hospitalization, Other)
  Sender: ABBVIE
  Company Number: EU-ABBVIE-6441612

PATIENT
  Age: 80 Year
  Sex: Male

DRUGS (1)
  1. DUOPA [Suspect]
     Active Substance: CARBIDOPA\LEVODOPA
     Indication: Product used for unknown indication
     Route: 058
     Dates: start: 20250822

REACTIONS (3)
  - Wound haematoma [Not Recovered/Not Resolved]
  - Skin wound [Unknown]
  - Fall [Unknown]

NARRATIVE: CASE EVENT DATE: 20250801
